FAERS Safety Report 4523365-9 (Version None)
Quarter: 2004Q4

REPORT INFORMATION
  Report Type: 
  Country: None (occurrence: None)
  Receive Date: 20041210
  Receipt Date: 20041105
  Transmission Date: 20050328
  Serious: Yes (Hospitalization)
  Sender: FDA-Public Use
  Company Number: FR-MERCK-0411FRA00038

PATIENT
  Age: 57 Year
  Sex: Male

DRUGS (7)
  1. [THERAPY UNSPECIFIED] [Concomitant]
     Indication: PROPHYLAXIS
     Route: 065
  2. SINGULAIR [Suspect]
     Indication: ASTHMA
     Route: 048
     Dates: start: 20040901, end: 20041026
  3. SINGULAIR [Suspect]
     Route: 048
     Dates: start: 20041102, end: 20041102
  4. CLARITHROMYCIN [Concomitant]
     Route: 048
  5. ATENOLOL AND NIFEDIPINE [Concomitant]
     Route: 048
  6. CANDESARTAN CILEXETIL [Concomitant]
     Indication: HYPERTENSION
     Route: 048
  7. GLIMEPIRIDE [Concomitant]
     Indication: DIABETES MELLITUS NON-INSULIN-DEPENDENT
     Route: 048

REACTIONS (2)
  - LUNG NEOPLASM MALIGNANT [None]
  - VASODILATATION [None]
